FAERS Safety Report 10191525 (Version 1)
Quarter: 2014Q2

REPORT INFORMATION
  Report Type: Report from Study
  Country: ES (occurrence: ES)
  Receive Date: 20140523
  Receipt Date: 20140523
  Transmission Date: 20141212
  Serious: Yes (Hospitalization)
  Sender: FDA-Public Use
  Company Number: ES-JNJFOC-20140505239

PATIENT
  Age: 52 Year
  Sex: Female

DRUGS (7)
  1. STELARA [Suspect]
     Indication: PSORIASIS
     Route: 058
     Dates: start: 20140327, end: 20140327
  2. METFORMIN [Concomitant]
     Indication: TYPE 2 DIABETES MELLITUS
     Route: 065
  3. SIMVASTATIN [Concomitant]
     Indication: DYSLIPIDAEMIA
     Route: 065
  4. IRBESARTAN [Concomitant]
     Indication: HYPERTENSION
     Route: 065
  5. NICARDIPINE [Concomitant]
     Route: 065
  6. ISONIAZID [Concomitant]
     Indication: TUBERCULIN TEST POSITIVE
     Route: 065
  7. OMEPRAZOLE [Concomitant]
     Route: 065

REACTIONS (2)
  - Ischaemic stroke [Recovered/Resolved]
  - Partial seizures with secondary generalisation [Recovered/Resolved]
